FAERS Safety Report 4359291-8 (Version None)
Quarter: 2004Q2

REPORT INFORMATION
  Report Type: 
  Country: None (occurrence: None)
  Receive Date: 20040512
  Receipt Date: 20040430
  Transmission Date: 20050107
  Serious: Yes (Hospitalization)
  Sender: FDA-Public Use
  Company Number: 200403694

PATIENT
  Age: 15 Month
  Sex: Male

DRUGS (2)
  1. IBUPROFEN [Suspect]
     Indication: HEAT RASH
     Dates: start: 20040406
  2. CALPOL [Concomitant]

REACTIONS (1)
  - MENINGOCOCCAL SEPSIS [None]
